FAERS Safety Report 5673044-X (Version None)
Quarter: 2008Q1

REPORT INFORMATION
  Report Type: 
  Country: None (occurrence: None)
  Receive Date: 20080319
  Receipt Date: 20080314
  Transmission Date: 20080703
  Serious: No
  Sender: FDA-Public Use
  Company Number: US-ASTRAZENECA-2008UW02768

PATIENT
  Age: 55 Year
  Sex: Female
  Weight: 95.3 kg

DRUGS (2)
  1. SYMBICORT [Suspect]
     Indication: ASTHMA
     Dosage: UNIT DOSE 160/4.5 UG: 2 PUFFS AM / 2 PUFFS PM
     Route: 055
     Dates: start: 20080116
  2. SYMBICORT [Suspect]
     Dosage: SAMPLE INHALER
     Route: 055
     Dates: start: 20071201

REACTIONS (3)
  - DEVICE FAILURE [None]
  - ODYNOPHAGIA [None]
  - SENSATION OF FOREIGN BODY [None]
